FAERS Safety Report 17790398 (Version 1)
Quarter: 2020Q2

REPORT INFORMATION
  Report Type: Spontaneous
  Country: US (occurrence: US)
  Receive Date: 20200514
  Receipt Date: 20200514
  Transmission Date: 20200714
  Serious: No
  Sender: FDA-Public Use
  Company Number: None

PATIENT
  Age: 68 Year
  Sex: Male

DRUGS (6)
  1. DEXAMETHASONE. [Concomitant]
     Active Substance: DEXAMETHASONE
  2. POMALYST [Concomitant]
     Active Substance: POMALIDOMIDE
  3. VELCADE [Concomitant]
     Active Substance: BORTEZOMIB
  4. POMAL [Concomitant]
  5. NINLARO [Suspect]
     Active Substance: IXAZOMIB CITRATE
     Indication: PLASMA CELL MYELOMA
     Route: 048
     Dates: start: 20200409
  6. LYRICA [Concomitant]
     Active Substance: PREGABALIN

REACTIONS (2)
  - Dizziness [None]
  - Dyspnoea [None]
